FAERS Safety Report 14870976 (Version 1)
Quarter: 2018Q2

REPORT INFORMATION
  Report Type: Spontaneous
  Country: GB (occurrence: GB)
  Receive Date: 20180509
  Receipt Date: 20180509
  Transmission Date: 20180711
  Serious: Yes (Hospitalization, Other)
  Sender: FDA-Public Use
  Company Number: GB-PFIZER INC-2018185597

PATIENT
  Age: 70 Year
  Sex: Female
  Weight: 69.85 kg

DRUGS (2)
  1. FLUCONAZOLE. [Suspect]
     Active Substance: FLUCONAZOLE
     Indication: CANDIDA INFECTION
     Dosage: 150 MG, UNK
     Route: 048
     Dates: start: 20180323, end: 20180323
  2. GLUCOPHAGE S [Concomitant]
     Active Substance: METFORMIN HYDROCHLORIDE
     Dosage: UNK

REACTIONS (5)
  - Erythema [Not Recovered/Not Resolved]
  - Heart rate increased [Unknown]
  - Blood pressure increased [Unknown]
  - Rash pruritic [Recovering/Resolving]
  - Body temperature increased [Unknown]

NARRATIVE: CASE EVENT DATE: 20180323
